FAERS Safety Report 18790189 (Version 1)
Quarter: 2021Q1

REPORT INFORMATION
  Report Type: Other
  Country: US (occurrence: US)
  Receive Date: 20210125
  Receipt Date: 20210125
  Transmission Date: 20210419
  Serious: Yes (Hospitalization, Other)
  Sender: FDA-Public Use
  Company Number: US-ACORDA-ACO_166836_2020

PATIENT
  Sex: Female
  Weight: 69.01 kg

DRUGS (2)
  1. AMPYRA [Suspect]
     Active Substance: DALFAMPRIDINE
     Indication: GAIT DISTURBANCE
     Dosage: UNK
     Route: 048
  2. TECFIDERA [Suspect]
     Active Substance: DIMETHYL FUMARATE
     Indication: MULTIPLE SCLEROSIS
     Dosage: MAINTENANCE DOSE
     Route: 048

REACTIONS (8)
  - Temperature intolerance [Unknown]
  - Neurogenic bladder [Unknown]
  - Sepsis [Recovered/Resolved]
  - Asthenia [Unknown]
  - Memory impairment [Unknown]
  - Urinary tract infection [Unknown]
  - Fatigue [Unknown]
  - Dizziness [Unknown]
